FAERS Safety Report 8083936-2 (Version None)
Quarter: 2012Q1

REPORT INFORMATION
  Report Type: 
  Country: None (occurrence: None)
  Receive Date: 20120128
  Receipt Date: 20110113
  Transmission Date: 20120608
  Serious: No
  Sender: FDA-Public Use
  Company Number: US-ABBOTT-11P-163-0697333-00

PATIENT
  Age: 63 Year
  Sex: Female

DRUGS (9)
  1. DEXALANT [Concomitant]
     Indication: GASTROOESOPHAGEAL REFLUX DISEASE
  2. ENJUVIA [Concomitant]
     Indication: PRODUCT USED FOR UNKNOWN INDICATION
  3. TESTIN GEL [Concomitant]
     Indication: PRODUCT USED FOR UNKNOWN INDICATION
     Dosage: RUBBED ON SKIN ONCE A DAY
  4. TRIAMTERINE [Concomitant]
     Indication: SWELLING
  5. HUMIRA [Suspect]
     Indication: ANKYLOSING SPONDYLITIS
     Dates: start: 20101202
  6. NEFAZOVONE [Concomitant]
     Indication: DEPRESSION
  7. VITAMIN TAB [Concomitant]
     Indication: PRODUCT USED FOR UNKNOWN INDICATION
  8. CRESTOR [Concomitant]
     Indication: BLOOD CHOLESTEROL INCREASED
  9. XYZAL [Concomitant]
     Indication: HYPERSENSITIVITY

REACTIONS (1)
  - INJECTION SITE PAIN [None]
